FAERS Safety Report 24234389 (Version 1)
Quarter: 2024Q3

REPORT INFORMATION
  Report Type: Spontaneous
  Country: US (occurrence: None)
  Receive Date: 20240820
  Receipt Date: 20240820
  Transmission Date: 20241017
  Serious: Yes (Life-Threatening, Hospitalization)
  Sender: Public
  Company Number: None

PATIENT
  Age: 62 Year
  Sex: Female
  Weight: 65.25 kg

DRUGS (18)
  1. XELJANZ [Suspect]
     Active Substance: TOFACITINIB CITRATE
     Indication: Ankylosing spondylitis
     Dosage: OTHER QUANTITY : 1 TABLET(S);?FREQUENCY : DAILY;?
     Route: 048
     Dates: start: 20220920, end: 20220926
  2. XELJANZ [Suspect]
     Active Substance: TOFACITINIB CITRATE
     Indication: Rheumatoid arthritis
  3. XELJANZ [Suspect]
     Active Substance: TOFACITINIB CITRATE
     Indication: Psoriatic arthropathy
  4. XELJANZ [Suspect]
     Active Substance: TOFACITINIB CITRATE
     Indication: Rheumatoid arthritis
  5. XELJANZ [Suspect]
     Active Substance: TOFACITINIB CITRATE
     Indication: Psoriatic arthropathy
  6. ACETAMINOPHEN\OXYCODONE HYDROCHLORIDE [Concomitant]
     Active Substance: ACETAMINOPHEN\OXYCODONE HYDROCHLORIDE
  7. TIZANIDINE [Concomitant]
     Active Substance: TIZANIDINE
  8. GABAPENTIN [Concomitant]
     Active Substance: GABAPENTIN
  9. PRAVASTATIN [Concomitant]
     Active Substance: PRAVASTATIN
  10. dilitazen [Concomitant]
  11. PAROXETINE [Concomitant]
     Active Substance: PAROXETINE
  12. ASPIRIN [Concomitant]
     Active Substance: ASPIRIN
  13. PROMETHAZINE [Concomitant]
     Active Substance: PROMETHAZINE HYDROCHLORIDE
  14. FERROUS GLUCONATE [Concomitant]
     Active Substance: FERROUS GLUCONATE
  15. DOXEPIN [Concomitant]
     Active Substance: DOXEPIN
  16. PRAZOSIN [Concomitant]
     Active Substance: PRAZOSIN\PRAZOSIN HYDROCHLORIDE
  17. VITAMIN C [Concomitant]
     Active Substance: ASCORBIC ACID
  18. ZINC [Concomitant]
     Active Substance: ZINC

REACTIONS (4)
  - Migraine [None]
  - Cerebral haemorrhage [None]
  - Blood pressure increased [None]
  - Memory impairment [None]

NARRATIVE: CASE EVENT DATE: 20220926
